FAERS Safety Report 7728571-8 (Version None)
Quarter: 2011Q3

REPORT INFORMATION
  Report Type: 
  Country: None (occurrence: None)
  Receive Date: 20110906
  Receipt Date: 20110823
  Transmission Date: 20111222
  Serious: Yes (Life-Threatening, Hospitalization, Other)
  Sender: FDA-Public Use
  Company Number: FR-PAR PHARMACEUTICAL, INC-2011SCPR003201

PATIENT

DRUGS (3)
  1. TRAMADOL HYDROCHLORIDE [Suspect]
     Dosage: 90 DF, UNKNOWN
     Route: 048
  2. KETOCONAZOLE [Suspect]
     Indication: VAGINAL INFECTION
     Dosage: UNK, UNKNOWN
     Route: 065
  3. TRAMADOL HYDROCHLORIDE [Suspect]
     Indication: DYSMENORRHOEA
     Dosage: UP TO 10 TABLETS PER DAY
     Route: 048

REACTIONS (4)
  - INTENTIONAL OVERDOSE [None]
  - MULTI-ORGAN FAILURE [None]
  - CARDIOTOXICITY [None]
  - DRUG DEPENDENCE [None]
